FAERS Safety Report 21395283 (Version 1)
Quarter: 2022Q3

REPORT INFORMATION
  Report Type: Spontaneous
  Country: US (occurrence: None)
  Receive Date: 20220928
  Receipt Date: 20220928
  Transmission Date: 20221026
  Serious: Yes (Hospitalization)
  Sender: FDA-Public Use
  Company Number: None

PATIENT
  Sex: Female

DRUGS (1)
  1. DOFETILIDE [Suspect]
     Active Substance: DOFETILIDE
     Indication: Atrial flutter
     Dosage: FREQUENCY : TWICE A DAY;?
     Route: 048
     Dates: start: 202201

REACTIONS (3)
  - Infection [None]
  - Oedema peripheral [None]
  - Therapy cessation [None]
